FAERS Safety Report 21626708 (Version 5)
Quarter: 2022Q4

REPORT INFORMATION
  Report Type: Report from Study
  Country: EG (occurrence: EG)
  Receive Date: 20221122
  Receipt Date: 20221220
  Transmission Date: 20230112
  Serious: Yes (Other)
  Sender: FDA-Public Use
  Company Number: EG-BAYER-2022A160264

PATIENT
  Sex: Male

DRUGS (11)
  1. EYLEA [Suspect]
     Active Substance: AFLIBERCEPT
     Indication: Retinal vascular occlusion
     Dosage: UNK, SOLUTION FOR INJECTION
     Route: 031
     Dates: start: 20220518
  2. EYLEA [Suspect]
     Active Substance: AFLIBERCEPT
     Dosage: UNK, SOLUTION FOR INJECTION
     Route: 031
     Dates: start: 202206, end: 202206
  3. EYLEA [Suspect]
     Active Substance: AFLIBERCEPT
     Dosage: LEFT EYE, SOLUTION FOR INJECTION
     Route: 031
     Dates: start: 20220817
  4. EYLEA [Suspect]
     Active Substance: AFLIBERCEPT
     Dosage: UNK, SOLUTION FOR INJECTION
     Route: 031
  5. OPHTHALMOLOGICALS [Concomitant]
     Indication: Product used for unknown indication
     Dosage: UNK
  6. ASPIRIN [Concomitant]
     Active Substance: ASPIRIN
     Indication: Cardiac disorder
     Dosage: 1 DF, QD
     Dates: start: 2010
  7. ASPIRIN [Concomitant]
     Active Substance: ASPIRIN
     Dosage: UNK
     Dates: start: 2010
  8. UNSPECIFIED INGREDIENT [Concomitant]
     Active Substance: UNSPECIFIED INGREDIENT
     Indication: Hypercholesterolaemia
     Dosage: 1 DF, QD
     Dates: start: 2010
  9. CHOLEROSE [Concomitant]
     Indication: Hypercholesterolaemia
     Dosage: 1 DF, QD
     Dates: start: 2010
  10. CHOLEROSE [Concomitant]
     Indication: Hypercholesterolaemia
     Dosage: UNK
     Dates: start: 2010
  11. OPHTHALMOLOGICALS [Concomitant]
     Indication: Product used for unknown indication
     Dosage: UNK

REACTIONS (2)
  - Visual impairment [Recovering/Resolving]
  - Eyelid ptosis [Recovering/Resolving]

NARRATIVE: CASE EVENT DATE: 20220601
